FAERS Safety Report 11844198 (Version 2)
Quarter: 2016Q1

REPORT INFORMATION
  Report Type: Spontaneous
  Country: AU (occurrence: AU)
  Receive Date: 20151217
  Receipt Date: 20160129
  Transmission Date: 20160526
  Serious: Yes (Hospitalization, Other)
  Sender: FDA-Public Use
  Company Number: AU-ASTRAZENECA-2015SF24654

PATIENT
  Age: 65 Year
  Sex: Female
  Weight: 96.5 kg

DRUGS (22)
  1. LYRICA [Concomitant]
     Active Substance: PREGABALIN
     Indication: NEUROPATHY PERIPHERAL
  2. NEXIUM [Concomitant]
     Active Substance: ESOMEPRAZOLE MAGNESIUM
     Indication: GASTROOESOPHAGEAL REFLUX DISEASE
  3. FORXIGA [Suspect]
     Active Substance: DAPAGLIFLOZIN
     Indication: BLOOD GLUCOSE INCREASED
     Route: 048
  4. DPP4 INHIBITOR [Concomitant]
  5. CARBAMAZEPINE. [Concomitant]
     Active Substance: CARBAMAZEPINE
     Indication: NEUROPATHY PERIPHERAL
  6. DIAMICRON [Concomitant]
     Active Substance: GLICLAZIDE
  7. PRAVASTATIN [Concomitant]
     Active Substance: PRAVASTATIN\PRAVASTATIN SODIUM
     Indication: BLOOD CHOLESTEROL ABNORMAL
  8. ENDONE [Concomitant]
     Active Substance: OXYCODONE HYDROCHLORIDE
     Dosage: 50 MG, FOUR TIMES A DAY, AS REQUIRED
  9. XIGDUO XR [Suspect]
     Active Substance: DAPAGLIFLOZIN PROPANEDIOL\METFORMIN HYDROCHLORIDE
     Indication: TYPE 2 DIABETES MELLITUS
     Dosage: 1 DF DAILY, 10/1000
     Route: 048
     Dates: start: 20151113, end: 20151126
  10. CO-DIOVAN [Concomitant]
     Active Substance: HYDROCHLOROTHIAZIDE\VALSARTAN
  11. DICLOFENAC [Concomitant]
     Active Substance: DICLOFENAC
  12. HYDRALAZINE [Concomitant]
     Active Substance: HYDRALAZINE HYDROCHLORIDE
     Indication: HYPERTENSION
  13. METFORMIN [Concomitant]
     Active Substance: METFORMIN HYDROCHLORIDE
     Indication: TYPE 2 DIABETES MELLITUS
  14. MAGMIN [Concomitant]
     Active Substance: MAGNESIUM ASPARTATE
     Indication: NEUROPATHY PERIPHERAL
  15. VAGIFEM LOW PESSARY [Concomitant]
     Dosage: 1 PESSARY TWICE WEEKLY, REASESS AFTER 3-6 MONTHS
  16. BYETTA [Concomitant]
     Active Substance: EXENATIDE
  17. ENDEP [Concomitant]
     Active Substance: AMITRIPTYLINE HYDROCHLORIDE
     Indication: NEUROPATHY PERIPHERAL
  18. MADOPAR HBS [Concomitant]
     Active Substance: BENSERAZIDE HYDROCHLORIDE\LEVODOPA
     Indication: NEUROPATHY PERIPHERAL
     Dosage: 100 MG, 25 MG, 2 TABLETS AT NIGHT
  19. PANADOL [Concomitant]
     Active Substance: ACETAMINOPHEN
  20. PREDNISOLONE. [Concomitant]
     Active Substance: PREDNISOLONE
     Indication: POLYMYALGIA RHEUMATICA
  21. THYROXINE [Concomitant]
     Active Substance: LEVOTHYROXINE
     Indication: HYPOTHYROIDISM
  22. VALSARTAN. [Concomitant]
     Active Substance: VALSARTAN
     Indication: HYPERTENSION

REACTIONS (4)
  - Klebsiella infection [Unknown]
  - Acute kidney injury [Recovered/Resolved]
  - Urinary tract infection [Unknown]
  - Liver disorder [Unknown]

NARRATIVE: CASE EVENT DATE: 20151124
